FAERS Safety Report 5630409-X (Version None)
Quarter: 2008Q1

REPORT INFORMATION
  Report Type: 
  Country: None (occurrence: None)
  Receive Date: 20080219
  Receipt Date: 20080214
  Transmission Date: 20080703
  Serious: Yes (Other)
  Sender: FDA-Public Use
  Company Number: FR-BRISTOL-MYERS SQUIBB COMPANY-14077788

PATIENT
  Age: 51 Year
  Sex: Male

DRUGS (7)
  1. VIDEX [Suspect]
     Indication: HIV INFECTION
     Dates: start: 20070101
  2. VIREAD [Concomitant]
     Dates: start: 20070101
  3. APTIVUS [Concomitant]
     Dates: start: 20070101
  4. NORVIR [Concomitant]
     Dates: start: 20070101
  5. FUZEON [Concomitant]
     Dates: start: 20070101
  6. KETODERM [Concomitant]
  7. BACTRIM [Concomitant]

REACTIONS (4)
  - DRY MOUTH [None]
  - DYSPHAGIA [None]
  - NAUSEA [None]
  - WEIGHT DECREASED [None]
